FAERS Safety Report 19930465 (Version 2)
Quarter: 2021Q4

REPORT INFORMATION
  Report Type: Spontaneous
  Country: GB (occurrence: GB)
  Receive Date: 20211008
  Receipt Date: 20211024
  Transmission Date: 20220304
  Serious: No
  Sender: FDA-Public Use
  Company Number: GB-LUPIN PHARMACEUTICALS INC.-2021-18887

PATIENT
  Age: 44 Year
  Sex: Female

DRUGS (6)
  1. METRONIDAZOLE [Suspect]
     Active Substance: METRONIDAZOLE
     Indication: Trichomoniasis
     Dosage: 400 MILLIGRAM, BID (TABLET)
     Route: 048
  2. METRONIDAZOLE [Suspect]
     Active Substance: METRONIDAZOLE
     Dosage: 800 MILLIGRAM, BID (TABLET)
     Route: 048
  3. METRONIDAZOLE [Suspect]
     Active Substance: METRONIDAZOLE
     Dosage: UNK, QD (GEL, AT BEDTIME)
     Route: 067
  4. METRONIDAZOLE [Suspect]
     Active Substance: METRONIDAZOLE
     Dosage: 400 MILLIGRAM, BID (TABLET)
     Route: 067
  5. METRONIDAZOLE [Suspect]
     Active Substance: METRONIDAZOLE
     Dosage: 400 MILLIGRAM, TID ( (TABLET))
     Route: 067
  6. TINIDAZOLE [Suspect]
     Active Substance: TINIDAZOLE
     Indication: Trichomoniasis
     Dosage: 1 GRAM, TID
     Route: 048

REACTIONS (2)
  - Treatment failure [Unknown]
  - Product use issue [Unknown]
